FAERS Safety Report 8374384-6 (Version None)
Quarter: 2012Q2

REPORT INFORMATION
  Report Type: 
  Country: None (occurrence: None)
  Receive Date: 20120521
  Receipt Date: 20120511
  Transmission Date: 20120825
  Serious: No
  Sender: FDA-Public Use
  Company Number: US-ASTRAZENECA-2009SE08978

PATIENT
  Age: 53 Year
  Sex: Female

DRUGS (3)
  1. SYMBICORT [Suspect]
     Indication: EMPHYSEMA
     Dosage: UNKNOWN STRENGTH AND FREQUENCY
     Route: 055
  2. ZOLOFT [Concomitant]
     Indication: DEPRESSION
  3. NEXIUM [Suspect]
     Route: 048

REACTIONS (7)
  - DYSPNOEA [None]
  - DEPRESSION [None]
  - PAIN [None]
  - FEELING ABNORMAL [None]
  - GASTROOESOPHAGEAL REFLUX DISEASE [None]
  - INTENTIONAL DRUG MISUSE [None]
  - BRONCHITIS [None]
